FAERS Safety Report 21556212 (Version 1)
Quarter: 2022Q4

REPORT INFORMATION
  Report Type: Spontaneous
  Country: US (occurrence: US)
  Receive Date: 20221104
  Receipt Date: 20221104
  Transmission Date: 20230113
  Serious: Yes (Other)
  Sender: FDA-Public Use
  Company Number: US-FreseniusKabi-FK202214725

PATIENT
  Age: 18 Year
  Sex: Female

DRUGS (4)
  1. DACARBAZINE [Suspect]
     Active Substance: DACARBAZINE
     Indication: Hodgkin^s disease
     Dosage: THE PATIENT COMPLETED 6 CYCLES.
     Route: 065
  2. VINBLASTINE [Suspect]
     Active Substance: VINBLASTINE
     Indication: Hodgkin^s disease
     Dosage: THE PATIENT COMPLETED 6 CYCLES.
     Route: 065
  3. ADCETRIS [Suspect]
     Active Substance: BRENTUXIMAB VEDOTIN
     Indication: Hodgkin^s disease
     Dosage: THE PATIENT COMPLETED 6 CYCLES.?ADCETRIS WAS DOSE DECREASED TWICE WITHIN 6 CYCLES.
     Route: 065
  4. ADRIAMYCIN [Suspect]
     Active Substance: DOXORUBICIN HYDROCHLORIDE
     Indication: Hodgkin^s disease
     Dosage: THE PATIENT COMPLETED 6 CYCLES.
     Route: 065

REACTIONS (4)
  - Neuropathy peripheral [Unknown]
  - Abdominal pain upper [Unknown]
  - Abdominal pain [Unknown]
  - Bone pain [Unknown]
